FAERS Safety Report 8506214-3 (Version None)
Quarter: 2012Q3

REPORT INFORMATION
  Report Type: 
  Country: None (occurrence: None)
  Receive Date: 20120712
  Receipt Date: 20120703
  Transmission Date: 20120928
  Serious: Yes (Other)
  Sender: FDA-Public Use
  Company Number: FR-ROCHE-1084153

PATIENT
  Age: 63 Year
  Sex: Male

DRUGS (8)
  1. CELLCEPT [Suspect]
     Indication: TRANSPLANT REJECTION
     Route: 048
     Dates: start: 20120314, end: 20120604
  2. PREDNISOLONE [Concomitant]
  3. ZOLPIDEM TARTRATE [Concomitant]
  4. VALGANCICLOVIR [Suspect]
     Indication: PROPHYLAXIS
     Route: 048
     Dates: start: 20120314, end: 20120604
  5. RABEPRAZOLE SODIUM [Concomitant]
  6. HYPERIUM [Concomitant]
  7. NEORAL [Concomitant]
  8. ACETAMINOPHEN [Concomitant]

REACTIONS (2)
  - LEUKOPENIA [None]
  - AGRANULOCYTOSIS [None]
